FAERS Safety Report 5819182-X (Version None)
Quarter: 2008Q3

REPORT INFORMATION
  Report Type: 
  Country: None (occurrence: None)
  Receive Date: 20080721
  Receipt Date: 20080721
  Transmission Date: 20090109
  Serious: Yes (Hospitalization)
  Sender: FDA-Public Use
  Company Number: None

PATIENT
  Age: 77 Year
  Sex: Male
  Weight: 77.8 kg

DRUGS (1)
  1. NAPROXEN [Suspect]
     Indication: PAIN
     Dosage: 220MG

REACTIONS (1)
  - RENAL FAILURE ACUTE [None]
